FAERS Safety Report 4647551-2 (Version None)
Quarter: 2005Q2

REPORT INFORMATION
  Report Type: 
  Country: None (occurrence: None)
  Receive Date: 20050428
  Receipt Date: 20050421
  Transmission Date: 20051028
  Serious: Yes (Other)
  Sender: FDA-Public Use
  Company Number: US-ROCHE-402861

PATIENT
  Age: 48 Year
  Sex: Female
  Weight: 81.6 kg

DRUGS (2)
  1. PEGASYS [Suspect]
     Indication: HEPATITIS C
     Dosage: PER WEEK.
     Route: 058
     Dates: start: 20040930, end: 20050404
  2. COPEGUS [Suspect]
     Indication: HEPATITIS C
     Dosage: 3 PILLS TAKEN AT 3AM AND 2 PILLS AT 2PM.
     Route: 048
     Dates: start: 20040930, end: 20050404

REACTIONS (2)
  - ASTHMA [None]
  - HYPERSENSITIVITY [None]
